FAERS Safety Report 12144580 (Version 1)
Quarter: 2016Q1

REPORT INFORMATION
  Report Type: Spontaneous
  Country: US (occurrence: None)
  Receive Date: 20160303
  Receipt Date: 20160303
  Transmission Date: 20160526
  Serious: Yes (Disabling)
  Sender: FDA-Public Use
  Company Number: None

PATIENT
  Age: 49 Year
  Sex: Female
  Weight: 94.35 kg

DRUGS (2)
  1. FLOUXETINE HCI [Concomitant]
  2. LEVAQUIN [Suspect]
     Active Substance: LEVOFLOXACIN
     Indication: BRONCHITIS
     Route: 048

REACTIONS (8)
  - Musculoskeletal pain [None]
  - Musculoskeletal stiffness [None]
  - Fall [None]
  - Insomnia [None]
  - Asthenia [None]
  - Exercise tolerance decreased [None]
  - Arthralgia [None]
  - Pain [None]

NARRATIVE: CASE EVENT DATE: 20151028
